FAERS Safety Report 6373233-5 (Version None)
Quarter: 2009Q3

REPORT INFORMATION
  Report Type: 
  Country: None (occurrence: None)
  Receive Date: 20090924
  Receipt Date: 20090107
  Transmission Date: 20100115
  Serious: No
  Sender: FDA-Public Use
  Company Number: US-ASTRAZENECA-2009UW00711

PATIENT
  Age: 40 Year
  Sex: Male

DRUGS (4)
  1. SEROQUEL [Suspect]
     Dosage: 600-1200 MG
     Route: 048
     Dates: start: 20080101
  2. EFFEXOR [Concomitant]
     Dosage: 300 MG
  3. WELLBUTRIN [Concomitant]
     Dosage: 300 MG
  4. LAMICTAL [Concomitant]
     Dosage: 200 MG

REACTIONS (3)
  - HYPERGLYCAEMIA [None]
  - HYPERGONADISM [None]
  - HYPERTHYROIDISM [None]
